FAERS Safety Report 20491309 (Version 1)
Quarter: 2022Q1

REPORT INFORMATION
  Report Type: Spontaneous
  Country: BG (occurrence: BG)
  Receive Date: 20220218
  Receipt Date: 20220218
  Transmission Date: 20220423
  Serious: Yes (Death, Hospitalization, Other)
  Sender: FDA-Public Use
  Company Number: BG-NOVARTISPH-NVSC2021BG263433

PATIENT
  Age: 3 Month
  Sex: Female
  Weight: 4.55 kg

DRUGS (4)
  1. ZOLGENSMA [Suspect]
     Active Substance: ONASEMNOGENE ABEPARVOVEC-XIOI
     Indication: Spinal muscular atrophy
     Dosage: 25.5 ML, QD
     Route: 042
     Dates: start: 20211110, end: 20211110
  2. MEDROL [Concomitant]
     Active Substance: METHYLPREDNISOLONE
     Indication: Product used for unknown indication
     Dosage: 3.5 MG
     Route: 048
     Dates: start: 20211111
  3. METHYLPREDNISOLONE [Concomitant]
     Active Substance: METHYLPREDNISOLONE
     Indication: Product used for unknown indication
     Dosage: 3.5 MG
     Route: 042
     Dates: start: 20211109, end: 20211110
  4. METHYLPREDNISOLONE [Concomitant]
     Active Substance: METHYLPREDNISOLONE
     Dosage: UNK
     Route: 048
     Dates: end: 20211111

REACTIONS (11)
  - Aspiration [Fatal]
  - Respiratory disorder [Fatal]
  - Bradycardia [Fatal]
  - Body temperature increased [Recovering/Resolving]
  - Decreased appetite [Unknown]
  - Inflammation [Unknown]
  - Secretion discharge [Unknown]
  - C-reactive protein increased [Unknown]
  - Procalcitonin increased [Unknown]
  - Vomiting [Recovered/Resolved]
  - Aspartate aminotransferase increased [Recovering/Resolving]

NARRATIVE: CASE EVENT DATE: 20211113
